FAERS Safety Report 8193345-3 (Version None)
Quarter: 2012Q1

REPORT INFORMATION
  Report Type: 
  Country: None (occurrence: None)
  Receive Date: 20120308
  Receipt Date: 20120305
  Transmission Date: 20120608
  Serious: No
  Sender: FDA-Public Use
  Company Number: US-PFIZER INC-2012058801

PATIENT
  Sex: Female
  Weight: 52.154 kg

DRUGS (3)
  1. LIPITOR [Concomitant]
     Dosage: UNK
  2. PROPRANOLOL [Concomitant]
     Dosage: 10 MG
  3. NEURONTIN [Suspect]
     Indication: NERVE INJURY
     Dosage: 100 MG, 3X/DAY
     Route: 048
     Dates: start: 20120302

REACTIONS (4)
  - PAIN IN EXTREMITY [None]
  - OEDEMA PERIPHERAL [None]
  - MUSCULOSKELETAL STIFFNESS [None]
  - PAIN [None]
